FAERS Safety Report 5728778-5 (Version None)
Quarter: 2008Q2

REPORT INFORMATION
  Report Type: 
  Country: None (occurrence: None)
  Receive Date: 20080506
  Receipt Date: 20080425
  Transmission Date: 20081010
  Serious: Yes (Hospitalization)
  Sender: FDA-Public Use
  Company Number: D0055863A

PATIENT
  Age: 69 Year
  Sex: Female
  Weight: 80 kg

DRUGS (11)
  1. REQUIP [Suspect]
     Indication: PARKINSON'S DISEASE
     Route: 048
     Dates: start: 20020101, end: 20071130
  2. AMANTADINE HCL [Suspect]
     Indication: PARKINSON'S DISEASE
     Dosage: 100MG THREE TIMES PER DAY
     Route: 048
     Dates: start: 20030101, end: 20080216
  3. L-DOPA [Concomitant]
     Indication: PARKINSON'S DISEASE
     Route: 048
  4. LEVOCARB [Concomitant]
     Indication: PARKINSON'S DISEASE
     Dosage: 125MG THREE TIMES PER DAY
     Route: 048
     Dates: start: 20020101
  5. L-THYROXINE [Concomitant]
     Dosage: 100UG PER DAY
     Route: 048
  6. LEVOCARB [Concomitant]
     Dosage: 125MG PER DAY
     Route: 048
  7. CARMEN [Concomitant]
     Indication: HYPERTENSION
     Dosage: 10MG PER DAY
     Route: 048
  8. ATACAND HCT [Concomitant]
     Dosage: 28.5MG PER DAY
     Route: 048
  9. ATACAND [Concomitant]
     Dosage: 16MG THREE TIMES PER WEEK
     Route: 048
  10. FURORESE [Concomitant]
     Dosage: 40MG THREE TIMES PER WEEK
     Route: 048
  11. VIGANTOLETTEN [Concomitant]
     Dosage: 1000IU PER DAY
     Route: 048

REACTIONS (37)
  - AMNESIA [None]
  - CARDIAC VALVE DISEASE [None]
  - CHANGE OF BOWEL HABIT [None]
  - CHOLELITHIASIS [None]
  - DIPLOPIA [None]
  - DISORIENTATION [None]
  - DISTURBANCE IN ATTENTION [None]
  - DIZZINESS [None]
  - DRY MOUTH [None]
  - FLUID RETENTION [None]
  - HALLUCINATION [None]
  - HYPOKINESIA [None]
  - IMPAIRED HEALING [None]
  - INSOMNIA [None]
  - LEUKOENCEPHALOPATHY [None]
  - LOSS OF CONSCIOUSNESS [None]
  - MIGRAINE [None]
  - MUSCLE SPASMS [None]
  - NIGHT BLINDNESS [None]
  - OEDEMA PERIPHERAL [None]
  - OESOPHAGEAL DISORDER [None]
  - ONYCHOMYCOSIS [None]
  - PARAKERATOSIS [None]
  - PATHOLOGICAL GAMBLING [None]
  - PHOTOPHOBIA [None]
  - PULMONARY FIBROSIS [None]
  - RAYNAUD'S PHENOMENON [None]
  - SCLERODERMA [None]
  - SENSORY LOSS [None]
  - SKIN DISCOLOURATION [None]
  - SKIN WRINKLING [None]
  - SOMNOLENCE [None]
  - SWELLING FACE [None]
  - SYNCOPE [None]
  - VERTIGO [None]
  - VESTIBULAR DISORDER [None]
  - VISUAL ACUITY REDUCED [None]
